FAERS Safety Report 8231872-0 (Version None)
Quarter: 2012Q1

REPORT INFORMATION
  Report Type: 
  Country: None (occurrence: None)
  Receive Date: 20120323
  Receipt Date: 20120308
  Transmission Date: 20120608
  Serious: Yes (Hospitalization)
  Sender: FDA-Public Use
  Company Number: BE-FRI-1000029132

PATIENT
  Age: 62 Year
  Sex: Female

DRUGS (4)
  1. ESCITALOPRAM [Suspect]
     Dosage: 15 MG
     Route: 048
  2. PROTHIADEN [Concomitant]
     Dosage: 75 MG
     Route: 048
  3. ESCITALOPRAM [Suspect]
     Dosage: 15 MG
     Route: 048
  4. FLUANXOL [Suspect]
     Route: 048

REACTIONS (4)
  - DIZZINESS [None]
  - VENTRICULAR TACHYCARDIA [None]
  - ARRHYTHMIA [None]
  - TACHYCARDIA [None]
